FAERS Safety Report 25767682 (Version 1)
Quarter: 2025Q3

REPORT INFORMATION
  Report Type: Spontaneous
  Country: US (occurrence: US)
  Receive Date: 20250905
  Receipt Date: 20250905
  Transmission Date: 20251021
  Serious: No
  Sender: GRIFOLS
  Company Number: US-IGSA-BIG0037664

PATIENT
  Age: 77 Year
  Sex: Male
  Weight: 79.6 kg

DRUGS (1)
  1. GAMUNEX-C [Suspect]
     Active Substance: HUMAN IMMUNOGLOBULIN G
     Indication: Immunodeficiency common variable
     Dosage: 40 GRAM, Q.4WK.
     Route: 042
     Dates: start: 20250827

REACTIONS (3)
  - Chills [Recovering/Resolving]
  - Pruritus [Recovering/Resolving]
  - Rash pruritic [Recovering/Resolving]

NARRATIVE: CASE EVENT DATE: 20250827
